FAERS Safety Report 23528293 (Version 5)
Quarter: 2025Q1

REPORT INFORMATION
  Report Type: Spontaneous
  Country: US (occurrence: US)
  Receive Date: 20240215
  Receipt Date: 20250109
  Transmission Date: 20250408
  Serious: No
  Sender: PFIZER
  Company Number: US-PFIZER INC-PV202300201456

PATIENT
  Age: 78 Year
  Sex: Female
  Weight: 58.957 kg

DRUGS (5)
  1. XELJANZ XR [Suspect]
     Active Substance: TOFACITINIB CITRATE
     Indication: Psoriatic arthropathy
  2. XELJANZ XR [Suspect]
     Active Substance: TOFACITINIB CITRATE
     Dosage: 11 MG, 1X/DAY
     Dates: start: 20240217
  3. AMLODIPINE [Concomitant]
     Active Substance: AMLODIPINE BESYLATE
     Indication: Hypertension
     Dosage: 5 ML, 1X/DAY
     Dates: start: 202111
  4. PREDNISONE [Concomitant]
     Active Substance: PREDNISONE
     Indication: Inflammation
     Dates: start: 202303
  5. ESZOPICLONE [Concomitant]
     Active Substance: ESZOPICLONE
     Indication: Sleep disorder
     Dosage: 2 MG, 1X/DAY (EVERY NIGHT)
     Dates: start: 202209

REACTIONS (5)
  - Hypoacusis [Unknown]
  - Therapeutic response unexpected [Unknown]
  - Depressed mood [Unknown]
  - Depression [Unknown]
  - Gastrointestinal disorder [Unknown]
